FAERS Safety Report 8675535 (Version 2)
Quarter: 2012Q4

REPORT INFORMATION
  Report Type: 
  Country: US (occurrence: US)
  Receive Date: 20120720
  Receipt Date: 20121116
  Transmission Date: 20130627
  Serious: Yes (Other)
  Sender: FDA-Public Use
  Company Number: US-ROCHE-791088

PATIENT
  Sex: Male
  Weight: 52.21 kg

DRUGS (3)
  1. ACCUTANE [Suspect]
     Indication: ACNE
     Route: 065
     Dates: start: 200110, end: 200206
  2. ACCUTANE [Suspect]
     Route: 065
     Dates: start: 200208, end: 200212
  3. PROVENTIL [Concomitant]

REACTIONS (4)
  - Inflammatory bowel disease [Unknown]
  - Crohn^s disease [Recovering/Resolving]
  - Cholangitis sclerosing [Recovering/Resolving]
  - Emotional distress [Unknown]
